FAERS Safety Report 5582411-4 (Version None)
Quarter: 2007Q4

REPORT INFORMATION
  Report Type: 
  Country: None (occurrence: None)
  Receive Date: 20071130
  Receipt Date: 20070117
  Transmission Date: 20080405
  Serious: Yes (Other)
  Sender: FDA-Public Use
  Company Number: WAES 0701USA02387

PATIENT
  Age: 66 Year
  Sex: Male
  Weight: 105.2345 kg

DRUGS (12)
  1. FOSAMAX [Suspect]
     Indication: OSTEOPENIA
     Dosage: 70 MG/WKL/PO
     Route: 048
     Dates: start: 20020814, end: 20060815
  2. FOSAMAX [Suspect]
     Indication: OSTEOPOROSIS
     Dosage: 70 MG/WKL/PO
     Route: 048
     Dates: start: 20020814, end: 20060815
  3. ARAVA [Concomitant]
  4. ATACAND [Concomitant]
  5. AVANDIA [Concomitant]
  6. COUMADIN [Concomitant]
  7. ENBREL [Concomitant]
  8. LIPITOR [Concomitant]
  9. NEXIUM [Concomitant]
  10. GLIPIZIDE [Concomitant]
  11. METHOTREXATE [Concomitant]
  12. PREDNISONE TAB [Concomitant]

REACTIONS (1)
  - OSTEONECROSIS [None]
